FAERS Safety Report 7503027-6 (Version None)
Quarter: 2011Q2

REPORT INFORMATION
  Report Type: 
  Country: None (occurrence: None)
  Receive Date: 20110525
  Receipt Date: 20101006
  Transmission Date: 20111010
  Serious: No
  Sender: FDA-Public Use
  Company Number: US-NOVEN-ALL1-2010-04866

PATIENT
  Sex: Female
  Weight: 24.943 kg

DRUGS (2)
  1. DAYTRANA [Suspect]
     Dosage: 10 MG, 1X/DAY:QD
     Route: 062
     Dates: start: 20100823
  2. DAYTRANA [Suspect]
     Dosage: 10 MG, 1X/DAY:QD
     Route: 062
     Dates: start: 20100401, end: 20100501

REACTIONS (7)
  - APPLICATION SITE ERYTHEMA [None]
  - APPLICATION SITE SWELLING [None]
  - APPLICATION SITE DRYNESS [None]
  - APPLICATION SITE PRURITUS [None]
  - APPLICATION SITE EXFOLIATION [None]
  - DRUG ADMINISTERED AT INAPPROPRIATE SITE [None]
  - APPLICATION SITE PAPULES [None]
